FAERS Safety Report 7928171-0 (Version None)
Quarter: 2011Q4

REPORT INFORMATION
  Report Type: 
  Country: None (occurrence: None)
  Receive Date: 20111118
  Receipt Date: 20111103
  Transmission Date: 20120403
  Serious: Yes (Death, Hospitalization)
  Sender: FDA-Public Use
  Company Number: AU-ROCHE-798992

PATIENT
  Sex: Female

DRUGS (19)
  1. FLUDARABINE PHOSPHATE [Suspect]
     Indication: CHRONIC LYMPHOCYTIC LEUKAEMIA
     Dosage: CYCLE 1: DAY 3-5 OF 28 DAYS.
     Route: 048
  2. GLYCERYL TRINITRATE SPRAY [Concomitant]
     Dates: start: 20081117, end: 20081117
  3. MABTHERA [Suspect]
     Dosage: CYCLE 2 TO 6, DAY 1 OF EVERY 28.
     Route: 042
     Dates: start: 20081215, end: 20090406
  4. SIMVASTATIN [Concomitant]
  5. CYCLOPHOSPHAMIDE [Suspect]
     Indication: CHRONIC LYMPHOCYTIC LEUKAEMIA
     Dosage: CYCLE 1: DAY 3-5 OF 28 DAYS
     Route: 048
  6. ENOXAPARIN SODIUM [Concomitant]
     Route: 058
     Dates: start: 20081112, end: 20081117
  7. VALTREX [Concomitant]
     Dates: start: 20081118, end: 20090709
  8. SODIUM BICARBONATE [Concomitant]
     Dates: start: 20081117, end: 20081119
  9. CYCLOPHOSPHAMIDE [Suspect]
     Dosage: CYCLES 2 TO 6: DAYS 1 TO 3 OF EVERY 28 DAYS.
     Route: 048
  10. BACTRIM [Concomitant]
  11. NETUX [Concomitant]
     Dosage: DRUG REPORTED AS: NETLUX.
  12. TRIMETHOPRIM [Concomitant]
     Dates: start: 20110706, end: 20110710
  13. MABTHERA [Suspect]
     Indication: CHRONIC LYMPHOCYTIC LEUKAEMIA
     Dosage: CYCLE 1 DAY 1 OF 28.
     Route: 042
     Dates: start: 20081117, end: 20081117
  14. FLUDARABINE PHOSPHATE [Suspect]
     Dosage: CYCLE 2 TO 6: DAY 1 TO 3 OF EVERY 28 DAYS.
     Route: 048
     Dates: start: 20081219, end: 20090408
  15. PANTOPRAZOLE [Concomitant]
     Dates: start: 20081118, end: 20081119
  16. DEXAMETHASONE [Concomitant]
     Dates: start: 20081117, end: 20081117
  17. ALLOPURINOL [Concomitant]
     Dates: start: 20081117, end: 20081222
  18. PREDNISOLONE [Concomitant]
  19. ASPIRIN [Concomitant]
     Dates: start: 20090202, end: 20110816

REACTIONS (1)
  - PROGRESSIVE MULTIFOCAL LEUKOENCEPHALOPATHY [None]
